FAERS Safety Report 10049323 (Version 3)
Quarter: 2014Q2

REPORT INFORMATION
  Report Type: Report from Study
  Country: FR (occurrence: FR)
  Receive Date: 20140401
  Receipt Date: 20140623
  Transmission Date: 20141212
  Serious: Yes (Hospitalization)
  Sender: FDA-Public Use
  Company Number: FR-ROCHE-1251102

PATIENT
  Sex: Male
  Weight: 84 kg

DRUGS (11)
  1. RITUXIMAB [Suspect]
     Indication: MALIGNANT LYMPHOID NEOPLASM
     Route: 042
     Dates: start: 20130222, end: 20130321
  2. RITUXIMAB [Suspect]
     Indication: CENTRAL NERVOUS SYSTEM LYMPHOMA
  3. CLONAZEPAM [Suspect]
     Indication: CONVULSION
     Route: 042
     Dates: start: 20130620
  4. THIOTEPA [Suspect]
     Indication: MALIGNANT LYMPHOID NEOPLASM
     Route: 042
  5. THIOTEPA [Suspect]
     Indication: CENTRAL NERVOUS SYSTEM LYMPHOMA
     Dosage: LAST DOSE PRIOR TO SAE: 530 MG
     Route: 042
     Dates: start: 20130618, end: 20130620
  6. BUSULFAN [Suspect]
     Indication: MALIGNANT LYMPHOID NEOPLASM
     Dosage: ON  23/JUN/2013, RECEIVED  LAST BUSULFAN DOSE ADMINISTERED BEFORE SEVERE SEPSIS ON FEBRILE APLASIA 6
     Route: 042
  7. BUSULFAN [Suspect]
     Indication: CENTRAL NERVOUS SYSTEM LYMPHOMA
     Dosage: LAST DOSE PRIOR TO SAE: 67.25 MG
     Route: 042
     Dates: start: 20130621, end: 20130623
  8. UROMITEXAN [Suspect]
     Indication: MALIGNANT LYMPHOID NEOPLASM
     Route: 042
  9. UROMITEXAN [Suspect]
     Indication: CENTRAL NERVOUS SYSTEM LYMPHOMA
     Dosage: LAST DOSE PRIOR TO SAE: 1010 MG
     Route: 042
     Dates: start: 20130624, end: 20130625
  10. CYCLOPHOSPHAMIDE [Suspect]
     Indication: MALIGNANT LYMPHOID NEOPLASM
     Route: 042
  11. CYCLOPHOSPHAMIDE [Suspect]
     Indication: CENTRAL NERVOUS SYSTEM LYMPHOMA
     Dosage: LAST DOSE PRIOR TO SAE: 5050 MG
     Route: 042
     Dates: start: 20130624, end: 20130625

REACTIONS (3)
  - Systemic candida [Recovered/Resolved]
  - Sepsis [Recovered/Resolved]
  - Febrile bone marrow aplasia [Recovered/Resolved]
